FAERS Safety Report 18010590 (Version 1)
Quarter: 2020Q3

REPORT INFORMATION
  Report Type: Report from Study
  Country: IT (occurrence: IT)
  Receive Date: 20200710
  Receipt Date: 20200710
  Transmission Date: 20201103
  Serious: Yes (Death)
  Sender: FDA-Public Use
  Company Number: IT-PFIZER INC-2020263436

PATIENT

DRUGS (2)
  1. MITOMYCIN C [Suspect]
     Active Substance: MITOMYCIN
     Indication: COLORECTAL CANCER METASTATIC
     Dosage: 30?50 MG/M^2, DAY 1, AS IAHC
     Route: 013
  2. EPIRUBICIN HCL [Suspect]
     Active Substance: EPIRUBICIN HYDROCHLORIDE
     Indication: COLORECTAL CANCER METASTATIC
     Dosage: 60?90 MG/M^2, DAY 1 AS IAHC
     Route: 013

REACTIONS (2)
  - Leukopenia [Fatal]
  - Cardiovascular disorder [Fatal]
